FAERS Safety Report 8838917 (Version 1)
Quarter: 2012Q4

REPORT INFORMATION
  Report Type: 
  Country: FR (occurrence: FR)
  Receive Date: 20121015
  Receipt Date: 20121015
  Transmission Date: 20130627
  Serious: Yes (Death)
  Sender: FDA-Public Use
  Company Number: FR-BRISTOL-MYERS SQUIBB COMPANY-17023219

PATIENT
  Age: 76 Year
  Sex: Female

DRUGS (11)
  1. AZACTAM FOR INJ [Suspect]
     Indication: INFECTION
     Route: 042
     Dates: start: 20120816, end: 20120903
  2. AMIKLIN [Suspect]
     Indication: INFECTION
     Route: 042
     Dates: start: 20120816, end: 20120902
  3. VANCOMYCIN [Suspect]
     Route: 042
     Dates: start: 201208
  4. LOVENOX [Concomitant]
     Dates: start: 20120828, end: 20120903
  5. LASILIX [Concomitant]
     Dates: start: 20120901, end: 20120903
  6. IVERMECTIN [Concomitant]
     Dates: start: 20120826, end: 20120826
  7. CLAFORAN [Concomitant]
     Dates: start: 20120816, end: 20120817
  8. ROCEPHINE [Concomitant]
     Dates: start: 20120815, end: 20120815
  9. MOTILIUM [Concomitant]
  10. TIORFAN [Concomitant]
  11. STILNOX [Concomitant]

REACTIONS (1)
  - Lymphoma [Fatal]
